FAERS Safety Report 12836630 (Version 2)
Quarter: 2016Q4

REPORT INFORMATION
  Report Type: Report from Study
  Country: PE (occurrence: PE)
  Receive Date: 20161011
  Receipt Date: 20161011
  Transmission Date: 20170207
  Serious: Yes (Hospitalization)
  Sender: FDA-Public Use
  Company Number: PE-009507513-1607PER010951

PATIENT
  Age: 35 Year
  Sex: Male

DRUGS (2)
  1. ZENHALE [Suspect]
     Active Substance: FORMOTEROL FUMARATE\MOMETASONE FUROATE
     Indication: DYSPNOEA
     Dosage: 1 PUSH IN EACH NOSTRIL IN THE MORNING, AND AT NIGHT
     Route: 048
     Dates: start: 201409
  2. NASONEX [Suspect]
     Active Substance: MOMETASONE FUROATE
     Indication: INCREASED VISCOSITY OF UPPER RESPIRATORY SECRETION
     Dosage: 4 SPRAYS PER DAY (AT NIGHT)
     Route: 045
     Dates: start: 201409

REACTIONS (4)
  - Ulcer [Unknown]
  - Product use issue [Unknown]
  - Eschar [Not Recovered/Not Resolved]
  - Skin infection [Recovered/Resolved]

NARRATIVE: CASE EVENT DATE: 201409
